FAERS Safety Report 24187977 (Version 1)
Quarter: 2024Q3

REPORT INFORMATION
  Report Type: Spontaneous
  Country: US (occurrence: US)
  Receive Date: 20240808
  Receipt Date: 20240808
  Transmission Date: 20241017
  Serious: Yes (Other)
  Sender: AUROBINDO
  Company Number: US-AUROBINDO-AUR-APL-2024-006454

PATIENT
  Sex: Female

DRUGS (1)
  1. LEVOFLOXACIN [Suspect]
     Active Substance: LEVOFLOXACIN
     Indication: Ear infection
     Dosage: UNK
     Route: 065
     Dates: start: 202309

REACTIONS (3)
  - Neuropathy peripheral [Unknown]
  - Muscular weakness [Unknown]
  - Pain in extremity [Unknown]
